FAERS Safety Report 5711288-9 (Version None)
Quarter: 2008Q2

REPORT INFORMATION
  Report Type: 
  Country: None (occurrence: None)
  Receive Date: 20080415
  Receipt Date: 20080403
  Transmission Date: 20081010
  Serious: Yes (Hospitalization)
  Sender: FDA-Public Use
  Company Number: CIP07002300

PATIENT
  Age: 80 Year
  Sex: Female

DRUGS (9)
  1. ACTONEL WITH CALCIUM(RISEDRONATE SODIUM 35 MG, CALCIUM CARBONATE 1250 [Suspect]
  2. ACTONEL [Suspect]
     Indication: OSTEOPOROSIS
     Dosage: ORAL
     Route: 048
     Dates: start: 20020616
  3. WARFARIN SODIUM [Concomitant]
  4. DRUG NOS [Concomitant]
  5. DIGOXIN [Concomitant]
  6. FUROSEMIDE [Concomitant]
  7. METOPROLOL SUCCINATE [Concomitant]
  8. PANADOL OSTEO (PARACETAMOL) [Concomitant]
  9. ZOCOR [Concomitant]

REACTIONS (1)
  - ATRIAL FIBRILLATION [None]
